FAERS Safety Report 24710511 (Version 3)
Quarter: 2024Q4

REPORT INFORMATION
  Report Type: Spontaneous
  Country: US (occurrence: US)
  Receive Date: 20241209
  Receipt Date: 20241217
  Transmission Date: 20250115
  Serious: Yes (Other)
  Sender: ROCHE
  Company Number: US-ROCHE-10000142984

PATIENT
  Age: 63 Year
  Sex: Female
  Weight: 68.03 kg

DRUGS (15)
  1. ZELBORAF [Suspect]
     Active Substance: VEMURAFENIB
     Indication: Erdheim-Chester disease
     Dosage: IN MORNING AND IN EVENING
     Route: 048
     Dates: start: 2017
  2. ZELBORAF [Suspect]
     Active Substance: VEMURAFENIB
     Dosage: IN MORNING
     Route: 048
     Dates: end: 20241125
  3. ZELBORAF [Suspect]
     Active Substance: VEMURAFENIB
     Dosage: AT NIGHT
     Route: 048
     Dates: end: 20241125
  4. ZELBORAF [Suspect]
     Active Substance: VEMURAFENIB
     Dosage: ONE IN MORNING AND ONE IN EVENING
     Route: 048
     Dates: start: 20241126
  5. LEVOTHYROXINE [Concomitant]
     Active Substance: LEVOTHYROXINE
     Route: 048
  6. OMEPRAZOLE [Concomitant]
     Active Substance: OMEPRAZOLE
     Indication: Dyspepsia
     Route: 048
  7. POTASSIUM GLUCONATE [Concomitant]
     Active Substance: POTASSIUM GLUCONATE
     Route: 048
  8. ATORVASTATIN [Concomitant]
     Active Substance: ATORVASTATIN
     Indication: Blood cholesterol increased
     Route: 048
     Dates: end: 202410
  9. ATORVASTATIN [Concomitant]
     Active Substance: ATORVASTATIN
     Route: 048
     Dates: start: 202410
  10. FERROUS SULFATE [Concomitant]
     Active Substance: FERROUS SULFATE
     Indication: Blood iron decreased
     Route: 048
  11. ATENOLOL [Concomitant]
     Active Substance: ATENOLOL
     Indication: Hypertension
     Route: 048
  12. DESMOPRESSIN [Concomitant]
     Active Substance: DESMOPRESSIN
     Dosage: AT NIGHT
     Route: 048
  13. DESMOPRESSIN [Concomitant]
     Active Substance: DESMOPRESSIN
     Dosage: HALF OF 0.1 MG PILL DURING THE DAY AS NEEDED
     Route: 048
  14. Prednisolone 1 acetate ophthalmic suspension [Concomitant]
     Dosage: ONE DROP IN EACH EYE
     Route: 047
  15. DULOXETINE [Concomitant]
     Active Substance: DULOXETINE
     Indication: Depression
     Route: 048

REACTIONS (14)
  - Cataract [Not Recovered/Not Resolved]
  - Cataract [Not Recovered/Not Resolved]
  - Retinal disorder [Not Recovered/Not Resolved]
  - Thermal burn [Unknown]
  - Diarrhoea [Not Recovered/Not Resolved]
  - Urinary incontinence [Not Recovered/Not Resolved]
  - Dyspepsia [Recovered/Resolved]
  - Blood iron decreased [Not Recovered/Not Resolved]
  - Hypertension [Recovered/Resolved]
  - Hypotension [Recovered/Resolved]
  - Fall [Unknown]
  - Spinal fracture [Recovered/Resolved]
  - Depression [Not Recovered/Not Resolved]
  - Blood cholesterol increased [Unknown]

NARRATIVE: CASE EVENT DATE: 20221016
